FAERS Safety Report 4880411-0 (Version None)
Quarter: 2005Q4

REPORT INFORMATION
  Report Type: 
  Country: None (occurrence: None)
  Receive Date: 20051223
  Receipt Date: 20050929
  Transmission Date: 20060501
  Serious: No
  Sender: FDA-Public Use
  Company Number: 05P-163-0302957-00

PATIENT
  Age: 70 Year
  Sex: Female
  Weight: 56.6996 kg

DRUGS (8)
  1. HUMIRA [Suspect]
     Indication: RHEUMATOID ARTHRITIS
     Dosage: 40 MG, 1 IN 2 WK, SUBCUTANEOUS
     Route: 058
     Dates: start: 20050601, end: 20050609
  2. CLOPIDOGREL BISULFATE [Concomitant]
  3. PANTOPRAZOLE [Concomitant]
  4. LEVOTHYROXINE SODIUM [Concomitant]
  5. DIGOXIN [Concomitant]
  6. METHOTREXATE [Concomitant]
  7. FUROSEMIDE [Concomitant]
  8. PREDNISONE [Concomitant]

REACTIONS (5)
  - CONDITION AGGRAVATED [None]
  - CYSTITIS [None]
  - DRUG INEFFECTIVE [None]
  - FATIGUE [None]
  - INJECTION SITE PAIN [None]
